FAERS Safety Report 12990615 (Version 1)
Quarter: 2016Q4

REPORT INFORMATION
  Report Type: Spontaneous
  Country: DE (occurrence: DE)
  Receive Date: 20161201
  Receipt Date: 20161201
  Transmission Date: 20170207
  Serious: Yes (Other)
  Sender: FDA-Public Use
  Company Number: DE-MYLANLABS-2016M1051792

PATIENT

DRUGS (1)
  1. MELPHALAN [Suspect]
     Active Substance: MELPHALAN
     Indication: PLASMA CELL MYELOMA IN REMISSION
     Dosage: HIGH-DOSE
     Route: 065

REACTIONS (2)
  - Varicella zoster virus infection [Recovered/Resolved]
  - Hyponatraemia [Recovered/Resolved]
